FAERS Safety Report 8273543-0 (Version None)
Quarter: 2012Q2

REPORT INFORMATION
  Report Type: 
  Country: None (occurrence: None)
  Receive Date: 20120411
  Receipt Date: 20120117
  Transmission Date: 20120825
  Serious: Yes (Disabling)
  Sender: FDA-Public Use
  Company Number: US-TEVA-2011006095

PATIENT
  Sex: Male
  Weight: 80.812 kg

DRUGS (2)
  1. SODIUM OXYBATE [Suspect]
     Route: 048
     Dates: start: 20101227, end: 20110401
  2. NUVIGIL [Suspect]
     Indication: NARCOLEPSY
     Dosage: Q AM
     Route: 048
     Dates: start: 20100401

REACTIONS (2)
  - IRRITABILITY [None]
  - DRUG INEFFECTIVE [None]
